FAERS Safety Report 20823599 (Version 1)
Quarter: 2022Q2

REPORT INFORMATION
  Report Type: Spontaneous
  Country: PT (occurrence: PT)
  Receive Date: 20220513
  Receipt Date: 20220513
  Transmission Date: 20220720
  Serious: Yes (Other)
  Sender: FDA-Public Use
  Company Number: PT-INFARMED-G202204-748

PATIENT
  Age: 17 Year
  Sex: Male

DRUGS (2)
  1. AMOXICILLIN [Suspect]
     Active Substance: AMOXICILLIN
     Indication: Tonsillitis
     Dosage: 500MG DE 12/12 HORAS DURANTE 3 DIAS. NO 4? DIA PASSOU PARA 1000MG DE 12/12 HORAS, 500MG EVERY 12/12
     Route: 048
     Dates: start: 202008
  2. IBUPROFEN [Suspect]
     Active Substance: IBUPROFEN
     Indication: Product used for unknown indication
     Dosage: 600 MILLIGRAM, TWO TIMES A DAY, 600MG 12/12 HOURS
     Route: 048
     Dates: start: 202008

REACTIONS (2)
  - Rash [Recovered/Resolved]
  - Rash maculo-papular [Recovered/Resolved]

NARRATIVE: CASE EVENT DATE: 20200801
